FAERS Safety Report 4656606-8 (Version None)
Quarter: 2005Q2

REPORT INFORMATION
  Report Type: 
  Country: None (occurrence: None)
  Receive Date: 20050509
  Receipt Date: 20031017
  Transmission Date: 20051028
  Serious: Yes (Other)
  Sender: FDA-Public Use
  Company Number: BW-BRISTOL-MYERS SQUIBB COMPANY-12427910

PATIENT
  Age: 40 Year
  Sex: Male

DRUGS (3)
  1. EFAVIRENZ [Suspect]
  2. COMBIVIR [Suspect]
     Indication: HIV INFECTION
     Dates: start: 20030609
  3. NEVIRAPINE [Suspect]
     Indication: HIV INFECTION

REACTIONS (3)
  - HYPERHIDROSIS [None]
  - NEUTROPENIA [None]
  - PYREXIA [None]
